FAERS Safety Report 10072561 (Version 1)
Quarter: 2014Q2

REPORT INFORMATION
  Report Type: Report from Study
  Country: BR (occurrence: BR)
  Receive Date: 20140411
  Receipt Date: 20140411
  Transmission Date: 20141212
  Serious: Yes (Other)
  Sender: FDA-Public Use
  Company Number: BR-US-EMD SERONO, INC.-7280184

PATIENT
  Sex: Female

DRUGS (6)
  1. REBIF [Suspect]
     Indication: RELAPSING-REMITTING MULTIPLE SCLEROSIS
     Dates: start: 20030514, end: 20031010
  2. REBIF [Suspect]
     Dates: start: 20070501, end: 20070831
  3. REBIF [Suspect]
     Dates: start: 20080321
  4. REBIF [Suspect]
     Dates: start: 20031010, end: 20070501
  5. SIMVASTATIN [Concomitant]
     Indication: PRODUCT USED FOR UNKNOWN INDICATION
  6. VALERIAN EXTRACT [Concomitant]
     Indication: PRODUCT USED FOR UNKNOWN INDICATION

REACTIONS (10)
  - Diabetes mellitus [Unknown]
  - Hypertension [Unknown]
  - Blood pressure fluctuation [Unknown]
  - Vasodilatation [Unknown]
  - Blood triglycerides increased [Unknown]
  - Blood cholesterol increased [Unknown]
  - Atrioventricular block [Unknown]
  - Arrhythmia [Unknown]
  - Joint swelling [Unknown]
  - Headache [Unknown]
